FAERS Safety Report 10742253 (Version 1)
Quarter: 2015Q1

REPORT INFORMATION
  Report Type: Spontaneous
  Country: US (occurrence: None)
  Receive Date: 20150123
  Receipt Date: 20150123
  Transmission Date: 20150721
  Serious: Yes (Hospitalization)
  Sender: FDA-Public Use
  Company Number: None

PATIENT
  Age: 62 Year
  Sex: Female
  Weight: 83.01 kg

DRUGS (17)
  1. TYLENOL [Concomitant]
     Active Substance: ACETAMINOPHEN
  2. DULERA [Concomitant]
     Active Substance: FORMOTEROL FUMARATE DIHYDRATE\MOMETASONE FUROATE
  3. FLAXSEE OIL [Concomitant]
  4. FLUCONAZOLE. [Concomitant]
     Active Substance: FLUCONAZOLE
  5. FLOVENT [Concomitant]
     Active Substance: FLUTICASONE PROPIONATE
  6. METOPROL E.R. [Concomitant]
  7. VALACYCLOVIR HCL [Concomitant]
     Active Substance: VALACYCLOVIR HYDROCHLORIDE
  8. ALBUTEROL. [Concomitant]
     Active Substance: ALBUTEROL
  9. VITAMIN B12 [Concomitant]
     Active Substance: CYANOCOBALAMIN
  10. VITAMIN E [Concomitant]
     Active Substance: .ALPHA.-TOCOPHEROL
  11. SPIRONALOACTONE [Concomitant]
  12. AMTODIPINE [Concomitant]
  13. FISH OIL [Concomitant]
     Active Substance: FISH OIL
  14. AMITRIPTLINE/ELAVIL GENERIC [Suspect]
     Active Substance: AMITRIPTYLINE HYDROCHLORIDE
     Indication: FIBROMYALGIA
     Dosage: 25 MG, 1 PILL, BEDTIME, BY MOUTH
     Route: 048
     Dates: start: 1996, end: 20140826
  15. BENADRYL [Concomitant]
     Active Substance: DIPHENHYDRAMINE HYDROCHLORIDE
  16. VITAMIN D [Concomitant]
     Active Substance: CHOLECALCIFEROL
  17. ZANTAC [Concomitant]
     Active Substance: RANITIDINE HYDROCHLORIDE

REACTIONS (27)
  - Dizziness [None]
  - Mental status changes [None]
  - Mental disorder [None]
  - Blood pressure systolic increased [None]
  - Asthenia [None]
  - Nausea [None]
  - Confusional state [None]
  - Speech disorder [None]
  - Asthma [None]
  - Balance disorder [None]
  - Dry eye [None]
  - Cough [None]
  - Diplopia [None]
  - Insomnia [None]
  - Drug interaction [None]
  - Tremor [None]
  - Fatigue [None]
  - Cognitive disorder [None]
  - Vision blurred [None]
  - Personality change [None]
  - Chills [None]
  - Anxiety [None]
  - Disturbance in attention [None]
  - Heart rate increased [None]
  - Hyperhidrosis [None]
  - Dyspnoea exertional [None]
  - Injection site bruising [None]

NARRATIVE: CASE EVENT DATE: 20140823
